FAERS Safety Report 13743634 (Version 1)
Quarter: 2017Q3

REPORT INFORMATION
  Report Type: Report from Study
  Country: US (occurrence: US)
  Receive Date: 20170711
  Receipt Date: 20170711
  Transmission Date: 20171127
  Serious: No
  Sender: FDA-Public Use
  Company Number: GXBR2017US001993

PATIENT
  Age: 13 Year
  Sex: Female
  Weight: 43.35 kg

DRUGS (2)
  1. OXANDROLONE. [Concomitant]
     Active Substance: OXANDROLONE
     Dosage: UNK DF, UNK
  2. OMNITROPE [Suspect]
     Active Substance: SOMATROPIN
     Indication: TURNER^S SYNDROME
     Dosage: 2.1 MG, QD
     Route: 058
     Dates: start: 201601

REACTIONS (1)
  - Insulin-like growth factor increased [Recovered/Resolved]

NARRATIVE: CASE EVENT DATE: 201609
